FAERS Safety Report 8971628 (Version 1)
Quarter: 2012Q4

REPORT INFORMATION
  Report Type: 
  Country: US (occurrence: US)
  Receive Date: 20121217
  Receipt Date: 20121217
  Transmission Date: 20130627
  Serious: No
  Sender: FDA-Public Use
  Company Number: US-VERTEX PHARMACEUTICAL INC.-2012-023380

PATIENT
  Age: 52 Year
  Sex: Male
  Weight: 87 kg

DRUGS (5)
  1. INCIVEK [Suspect]
     Indication: HEPATITIS C
     Dosage: 2250 mg, tid
     Route: 048
     Dates: start: 20121009, end: 20121019
  2. INCIVEK [Suspect]
     Dosage: 750 mg, tid
     Route: 048
     Dates: start: 20121020
  3. RIBAVIRIN [Concomitant]
     Indication: HEPATITIS C
     Dosage: 600 mg, bid
     Dates: start: 20121009
  4. PEGINTRON                          /01543001/ [Concomitant]
     Indication: HEPATITIS C
     Dosage: 150 �g, qw
     Route: 058
     Dates: start: 20121009
  5. MULTIVITAMIN                       /00097801/ [Concomitant]
     Indication: MEDICAL DIET
     Dosage: 1 UNK, qd
     Route: 048

REACTIONS (6)
  - Accidental overdose [Recovered/Resolved]
  - Parosmia [Not Recovered/Not Resolved]
  - Faeces discoloured [Not Recovered/Not Resolved]
  - Flatulence [Not Recovered/Not Resolved]
  - Saliva altered [Not Recovered/Not Resolved]
  - Dysgeusia [Not Recovered/Not Resolved]
